FAERS Safety Report 9108616 (Version 1)
Quarter: 2013Q1

REPORT INFORMATION
  Report Type: Spontaneous
  Country: US (occurrence: US)
  Receive Date: 20130222
  Receipt Date: 20130222
  Transmission Date: 20140127
  Serious: Yes (Hospitalization)
  Sender: FDA-Public Use
  Company Number: US-BAXTER-2013BAX006589

PATIENT
  Age: 60 None
  Sex: Female
  Weight: 45.5 kg

DRUGS (1)
  1. FEIBA NF [Suspect]
     Indication: BLOOD DISORDER
     Route: 042
     Dates: start: 201212

REACTIONS (5)
  - Muscle spasms [Recovered/Resolved]
  - Nausea [Recovered/Resolved]
  - Headache [Recovered/Resolved]
  - Pyrexia [Recovered/Resolved]
  - Lethargy [Recovered/Resolved]
